FAERS Safety Report 5197059-3 (Version None)
Quarter: 2006Q4

REPORT INFORMATION
  Report Type: 
  Country: None (occurrence: None)
  Receive Date: 20061212
  Receipt Date: 20061129
  Transmission Date: 20070319
  Serious: Yes (Hospitalization)
  Sender: FDA-Public Use
  Company Number: 2006BH012933

PATIENT
  Age: 66 Year
  Sex: Male
  Weight: 68.5 kg

DRUGS (2)
  1. PROTENATE [Suspect]
     Indication: PROPHYLAXIS
     Dosage: 250 ML; UNK; IV
     Route: 042
     Dates: start: 20060805
  2. SALINE [Concomitant]

REACTIONS (3)
  - ANAPHYLACTIC SHOCK [None]
  - DIALYSIS DEVICE COMPLICATION [None]
  - THROMBOSIS [None]
